FAERS Safety Report 11969810 (Version 1)
Quarter: 2016Q1

REPORT INFORMATION
  Report Type: Report from Study
  Country: US (occurrence: US)
  Receive Date: 20160128
  Receipt Date: 20160128
  Transmission Date: 20160526
  Serious: Yes (Other)
  Sender: FDA-Public Use
  Company Number: US-AMGEN-USASL2016006335

PATIENT
  Age: 79 Year
  Sex: Female

DRUGS (2)
  1. RESTASIS [Concomitant]
     Active Substance: CYCLOSPORINE
     Indication: DRY EYE
     Dosage: UNK
  2. ENBREL [Suspect]
     Active Substance: ETANERCEPT
     Indication: RHEUMATOID ARTHRITIS
     Dosage: 50 MG, QWK
     Route: 065
     Dates: start: 20001001

REACTIONS (5)
  - Deafness [Not Recovered/Not Resolved]
  - Lung neoplasm malignant [Unknown]
  - Emphysema [Unknown]
  - Blindness unilateral [Not Recovered/Not Resolved]
  - Chronic obstructive pulmonary disease [Unknown]
